FAERS Safety Report 19642055 (Version 1)
Quarter: 2021Q3

REPORT INFORMATION
  Report Type: Report from Study
  Country: US (occurrence: US)
  Receive Date: 20210730
  Receipt Date: 20210730
  Transmission Date: 20211014
  Serious: Yes (Hospitalization, Other)
  Sender: FDA-Public Use
  Company Number: US-JNJFOC-20210751414

PATIENT
  Age: 82 Year
  Sex: Male

DRUGS (1)
  1. RIVAROXABAN [Suspect]
     Active Substance: RIVAROXABAN
     Indication: PRODUCT USED FOR UNKNOWN INDICATION
     Dosage: UNK
     Route: 048

REACTIONS (8)
  - Atrial fibrillation [Unknown]
  - Oxygen saturation decreased [Unknown]
  - Heart rate decreased [Unknown]
  - Abscess intestinal [Unknown]
  - Gastrointestinal pain [Unknown]
  - Diverticulitis [Unknown]
  - Hospitalisation [Unknown]
  - Deafness [Unknown]

NARRATIVE: CASE EVENT DATE: 202101
